FAERS Safety Report 21518194 (Version 1)
Quarter: 2022Q4

REPORT INFORMATION
  Report Type: Spontaneous
  Country: NL (occurrence: NL)
  Receive Date: 20221028
  Receipt Date: 20221028
  Transmission Date: 20230113
  Serious: Yes (Hospitalization)
  Sender: FDA-Public Use
  Company Number: None

PATIENT
  Sex: Female

DRUGS (5)
  1. PACLITAXEL [Suspect]
     Active Substance: PACLITAXEL
     Indication: Lobular breast carcinoma in situ
     Dosage: STRENGTH: 6 MG/ML, 1X PER WEEK VIA I.V. INFUSION FOR 2-4.5 HOURS
     Dates: start: 20210319
  2. MORPHINE [Concomitant]
     Active Substance: MORPHINE
     Dosage: STRENGTH:  2 MG/ML
  3. METOCLOPRAMIDE [Concomitant]
     Active Substance: METOCLOPRAMIDE
     Dosage: STRENGTH:  10 MG
  4. ONDANSETRON [Concomitant]
     Active Substance: ONDANSETRON
     Dosage: STRENGTH: 16 MG
  5. SODIUM CHLORIDE [Concomitant]
     Active Substance: SODIUM CHLORIDE
     Dosage: STRENGTH: 9 MG/ML

REACTIONS (2)
  - Abdominal pain [Unknown]
  - Hepatic function abnormal [Unknown]
